FAERS Safety Report 18477292 (Version 3)
Quarter: 2021Q1

REPORT INFORMATION
  Report Type: Spontaneous
  Country: CA (occurrence: CA)
  Receive Date: 20201107
  Receipt Date: 20210208
  Transmission Date: 20210419
  Serious: Yes (Other)
  Sender: FDA-Public Use
  Company Number: CA-TAKEDA-2020TUS048554

PATIENT
  Age: 65 Year
  Sex: Female

DRUGS (29)
  1. INFLECTRA [Suspect]
     Active Substance: INFLIXIMAB-DYYB
     Dosage: 250 MILLIGRAM
     Route: 042
     Dates: start: 20200911
  2. ACETAMINOPHEN. [Concomitant]
     Active Substance: ACETAMINOPHEN
     Dosage: 1000 MILLIGRAM
     Route: 048
     Dates: start: 20191202, end: 20191202
  3. MEZAVANT [Concomitant]
     Active Substance: MESALAMINE
     Dosage: UNK
     Route: 065
     Dates: start: 2015
  4. INFLECTRA [Suspect]
     Active Substance: INFLIXIMAB-DYYB
     Indication: ANKYLOSING SPONDYLITIS
     Dosage: 250 MILLIGRAM
     Route: 042
     Dates: start: 20171020
  5. INFLECTRA [Suspect]
     Active Substance: INFLIXIMAB-DYYB
     Dosage: 250 MILLIGRAM
     Route: 042
     Dates: start: 20181231
  6. INFLECTRA [Suspect]
     Active Substance: INFLIXIMAB-DYYB
     Dosage: 250 MILLIGRAM
     Route: 042
     Dates: start: 20191202
  7. INFLECTRA [Suspect]
     Active Substance: INFLIXIMAB-DYYB
     Dosage: 250 MILLIGRAM
     Route: 042
     Dates: start: 20200129
  8. VITAMIN D NOS [Concomitant]
     Active Substance: VITAMIN D NOS
     Dosage: UNK
     Route: 065
  9. INFLECTRA [Suspect]
     Active Substance: INFLIXIMAB-DYYB
     Dosage: 250 MILLIGRAM
     Route: 042
     Dates: start: 20180518, end: 20180518
  10. INFLECTRA [Suspect]
     Active Substance: INFLIXIMAB-DYYB
     Dosage: 250 MILLIGRAM
     Route: 042
     Dates: start: 20190619
  11. INFLECTRA [Suspect]
     Active Substance: INFLIXIMAB-DYYB
     Dosage: 250 MILLIGRAM
     Route: 042
     Dates: start: 20190814
  12. INFLECTRA [Suspect]
     Active Substance: INFLIXIMAB-DYYB
     Dosage: 250 MILLIGRAM
     Route: 042
     Dates: start: 20200522
  13. ACETAMINOPHEN. [Concomitant]
     Active Substance: ACETAMINOPHEN
     Dosage: 1000 MILLIGRAM
     Route: 048
     Dates: start: 20200522, end: 20200522
  14. INFLECTRA [Suspect]
     Active Substance: INFLIXIMAB-DYYB
     Dosage: 250 MILLIGRAM
     Route: 042
     Dates: start: 20180907, end: 20180907
  15. INFLECTRA [Suspect]
     Active Substance: INFLIXIMAB-DYYB
     Dosage: 250 MILLIGRAM
     Route: 042
     Dates: start: 20191010
  16. INFLECTRA [Suspect]
     Active Substance: INFLIXIMAB-DYYB
     Dosage: 250 MILLIGRAM
     Route: 042
     Dates: start: 20200326
  17. SYNTHROID [Concomitant]
     Active Substance: LEVOTHYROXINE SODIUM
     Dosage: UNK
     Route: 065
  18. TYLENOL [Concomitant]
     Active Substance: ACETAMINOPHEN
     Dosage: UNK
     Route: 065
  19. DEXILANT [Suspect]
     Active Substance: DEXLANSOPRAZOLE
     Indication: DYSPEPSIA
     Dosage: 60 MILLIGRAM
     Route: 065
     Dates: start: 2020
  20. INFLECTRA [Suspect]
     Active Substance: INFLIXIMAB-DYYB
     Dosage: 250 MILLIGRAM
     Route: 042
     Dates: start: 20190225
  21. INFLECTRA [Suspect]
     Active Substance: INFLIXIMAB-DYYB
     Dosage: 250 MILLIGRAM
     Route: 042
     Dates: start: 20190424
  22. INFLECTRA [Suspect]
     Active Substance: INFLIXIMAB-DYYB
     Dosage: 250 MILLIGRAM
     Route: 042
     Dates: start: 20200717
  23. INFLECTRA [Suspect]
     Active Substance: INFLIXIMAB-DYYB
     Indication: COLITIS ULCERATIVE
     Dosage: 250 MILLIGRAM
     Route: 042
     Dates: start: 20171129, end: 20171129
  24. PANTOLOC [Suspect]
     Active Substance: PANTOPRAZOLE SODIUM
     Indication: PRODUCT USED FOR UNKNOWN INDICATION
     Dosage: UNK
     Route: 065
  25. INFLECTRA [Suspect]
     Active Substance: INFLIXIMAB-DYYB
     Dosage: 250 MILLIGRAM
     Route: 042
     Dates: start: 20180323, end: 20180323
  26. INFLECTRA [Suspect]
     Active Substance: INFLIXIMAB-DYYB
     Dosage: 250 MILLIGRAM
     Route: 042
     Dates: start: 20180713, end: 20180713
  27. INFLECTRA [Suspect]
     Active Substance: INFLIXIMAB-DYYB
     Dosage: 250 MILLIGRAM
     Route: 042
     Dates: start: 20181102, end: 20181102
  28. INFLECTRA [Suspect]
     Active Substance: INFLIXIMAB-DYYB
     Dosage: 250 MILLIGRAM
     Route: 042
     Dates: start: 20200326
  29. ACETAMINOPHEN. [Concomitant]
     Active Substance: ACETAMINOPHEN
     Dosage: 1000 MILLIGRAM
     Route: 048
     Dates: start: 20190814

REACTIONS (18)
  - Feeling cold [Unknown]
  - Nasopharyngitis [Unknown]
  - Headache [Unknown]
  - Blood pressure fluctuation [Unknown]
  - Therapeutic response shortened [Recovering/Resolving]
  - Oral candidiasis [Not Recovered/Not Resolved]
  - Erythema [Unknown]
  - Nasal congestion [Unknown]
  - Cough [Unknown]
  - Pain in extremity [Unknown]
  - Hypothyroidism [Unknown]
  - Infusion site pain [Not Recovered/Not Resolved]
  - Drug ineffective [Unknown]
  - Peripheral swelling [Unknown]
  - Localised infection [Unknown]
  - Condition aggravated [Not Recovered/Not Resolved]
  - Anal fissure [Unknown]
  - Dyspepsia [Unknown]

NARRATIVE: CASE EVENT DATE: 20171102
